FAERS Safety Report 11807292 (Version 1)
Quarter: 2015Q4

REPORT INFORMATION
  Report Type: Report from Study
  Country: TR (occurrence: TR)
  Receive Date: 20151207
  Receipt Date: 20151207
  Transmission Date: 20160305
  Serious: Yes (Death)
  Sender: FDA-Public Use
  Company Number: TR-PFIZER INC-2015429254

PATIENT
  Age: 63 Year
  Sex: Female

DRUGS (1)
  1. VORICONAZOLE. [Suspect]
     Active Substance: VORICONAZOLE
     Indication: TRICHOSPORON INFECTION
     Dosage: UNK
     Route: 048

REACTIONS (1)
  - Pathogen resistance [Fatal]
